FAERS Safety Report 10077865 (Version 2)
Quarter: 2014Q2

REPORT INFORMATION
  Report Type: Spontaneous
  Country: US (occurrence: US)
  Receive Date: 20140414
  Receipt Date: 20140429
  Transmission Date: 20141212
  Serious: Yes (Hospitalization, Other)
  Sender: FDA-Public Use
  Company Number: US-BAXTER-2014BAX017784

PATIENT
  Age: 71 Year
  Sex: Male

DRUGS (2)
  1. GAMMAGARD LIQUID [Suspect]
     Indication: CHRONIC INFLAMMATORY DEMYELINATING POLYRADICULONEUROPATHY
     Dosage: DAILY FOR 3 DAYS
     Route: 042
     Dates: start: 20140324, end: 20140326
  2. GAMMAGARD LIQUID [Suspect]
     Indication: OFF LABEL USE
     Route: 042
     Dates: start: 2009

REACTIONS (3)
  - VIIth nerve paralysis [Recovered/Resolved]
  - Loss of consciousness [Recovered/Resolved]
  - Amnesia [Recovered/Resolved]
